FAERS Safety Report 9807238 (Version 2)
Quarter: 2014Q1

REPORT INFORMATION
  Report Type: Spontaneous
  Country: US (occurrence: US)
  Receive Date: 20140110
  Receipt Date: 20140207
  Transmission Date: 20141002
  Serious: Yes (Hospitalization)
  Sender: FDA-Public Use
  Company Number: US-BIOGENIDEC-2014BI000333

PATIENT
  Age: 69 Year
  Sex: Female
  Weight: 61 kg

DRUGS (18)
  1. TECFIDERA [Suspect]
     Indication: PRODUCT USED FOR UNKNOWN INDICATION
     Route: 048
     Dates: start: 20130625
  2. BOTOX [Concomitant]
  3. LORAZEPAM [Concomitant]
  4. ALLEGRA [Concomitant]
  5. SIMVASTATIN [Concomitant]
  6. WELLBUTRIN [Concomitant]
  7. NITROFURANTIN [Concomitant]
  8. TOPROL [Concomitant]
  9. PROZAC [Concomitant]
  10. GLYCERIN [Concomitant]
  11. ACIDOPHILUS [Concomitant]
  12. MIRALAX POW [Concomitant]
  13. CALCIUM [Concomitant]
  14. VITAMIN D [Concomitant]
  15. AMITIZA [Concomitant]
  16. MULTIVITAMIN [Concomitant]
  17. NEUDEXTA [Concomitant]
  18. LACTULOSE [Concomitant]

REACTIONS (2)
  - Constipation [Unknown]
  - Megacolon [Unknown]
